FAERS Safety Report 16012949 (Version 1)
Quarter: 2019Q1

REPORT INFORMATION
  Report Type: Spontaneous
  Country: US (occurrence: US)
  Receive Date: 20190227
  Receipt Date: 20190227
  Transmission Date: 20190418
  Serious: Yes (Life-Threatening)
  Sender: FDA-Public Use
  Company Number: None

PATIENT
  Age: 44 Year
  Sex: Female
  Weight: 67.05 kg

DRUGS (3)
  1. CYCLOBENZAPRINE. [Suspect]
     Active Substance: CYCLOBENZAPRINE
     Indication: MYALGIA
     Dosage: ?          QUANTITY:1 TABLET(S);?
     Route: 048
     Dates: start: 20190214, end: 20190224
  2. NOVOLOG [Concomitant]
     Active Substance: INSULIN ASPART
  3. TOUJEO [Concomitant]
     Active Substance: INSULIN GLARGINE

REACTIONS (9)
  - Feeling of despair [None]
  - Suicidal ideation [None]
  - Somnolence [None]
  - Crying [None]
  - Dry eye [None]
  - Vertigo [None]
  - Anxiety [None]
  - Agitation [None]
  - Depression [None]

NARRATIVE: CASE EVENT DATE: 20190224
